FAERS Safety Report 8912521 (Version 1)
Quarter: 2012Q4

REPORT INFORMATION
  Report Type: Spontaneous
  Country: US (occurrence: None)
  Receive Date: 20121113
  Receipt Date: 20121113
  Transmission Date: 20130627
  Serious: Yes (Other)
  Sender: FDA-Public Use
  Company Number: B0842724A

PATIENT
  Age: 50 Year

DRUGS (1)
  1. ALKERAN [Suspect]
     Indication: RETINOBLASTOMA
     Dosage: left eye

REACTIONS (4)
  - Retinal vasculitis [None]
  - Vitreous haemorrhage [None]
  - Iris adhesions [None]
  - Atrophy of globe [None]
